FAERS Safety Report 7080364-3 (Version None)
Quarter: 2010Q4

REPORT INFORMATION
  Report Type: 
  Country: None (occurrence: None)
  Receive Date: 20101103
  Receipt Date: 20101025
  Transmission Date: 20110411
  Serious: Yes (Hospitalization)
  Sender: FDA-Public Use
  Company Number: FR-JNJFOC-20101007117

PATIENT
  Age: 60 Year
  Sex: Female

DRUGS (4)
  1. CAELYX [Suspect]
     Indication: OVARIAN CANCER METASTATIC
     Dosage: CYCLE 3
     Route: 042
  2. CAELYX [Suspect]
     Dosage: CYCLE 4
     Route: 042
  3. CAELYX [Suspect]
     Dosage: CYCLE 2
     Route: 042
  4. CAELYX [Suspect]
     Dosage: CYCLE 1
     Route: 042

REACTIONS (3)
  - ERYTHEMA [None]
  - PRURITUS [None]
  - SKIN LESION [None]
